FAERS Safety Report 8104681-0 (Version None)
Quarter: 2012Q1

REPORT INFORMATION
  Report Type: 
  Country: None (occurrence: None)
  Receive Date: 20120201
  Receipt Date: 20120127
  Transmission Date: 20120608
  Serious: Yes (Other)
  Sender: FDA-Public Use
  Company Number: US-PFIZER INC-2011300238

PATIENT
  Sex: Male
  Weight: 91 kg

DRUGS (6)
  1. SINGULAIR [Concomitant]
     Dosage: 10 MG, 1X/DAY
  2. AMLODIPINE [Concomitant]
     Dosage: 5 MG, 1X/DAY
  3. TOPROL-XL [Concomitant]
     Dosage: 50 MG, 1X/DAY
  4. LIPITOR [Suspect]
     Indication: BLOOD CHOLESTEROL INCREASED
     Dosage: 40 MG, 1X/DAY
     Route: 048
     Dates: start: 20100430
  5. SPIRIVA [Concomitant]
     Dosage: UNK
  6. ACETYLSALICYLIC ACID [Concomitant]
     Dosage: UNK, 1X/DAY

REACTIONS (3)
  - CARDIAC VALVE DISEASE [None]
  - DYSPNOEA [None]
  - PRODUCT QUALITY ISSUE [None]
